FAERS Safety Report 14067182 (Version 1)
Quarter: 2017Q4

REPORT INFORMATION
  Report Type: Spontaneous
  Country: US (occurrence: US)
  Receive Date: 20171007
  Receipt Date: 20171007
  Transmission Date: 20180321
  Serious: Yes (Other)
  Sender: FDA-Public Use
  Company Number: None

PATIENT
  Age: 82 Year
  Sex: Female
  Weight: 60.75 kg

DRUGS (16)
  1. ALPHA LIPOIC ACID [Concomitant]
     Active Substance: .ALPHA.-LIPOIC ACID
  2. TURMERIC [Concomitant]
     Active Substance: HERBALS\TURMERIC
  3. D-3 [Concomitant]
     Active Substance: CHOLECALCIFEROL
  4. COSAMIN ASU [Concomitant]
  5. CELEBREX [Suspect]
     Active Substance: CELECOXIB
     Indication: ARTHRITIS
     Dosage: ?          QUANTITY:1 TABLET(S);?
     Route: 048
     Dates: start: 20160316, end: 20170828
  6. SNYTHYROID [Concomitant]
  7. C VITAMIN [Concomitant]
  8. CAL-MAG [Concomitant]
  9. BOSWELLA [Concomitant]
  10. MULTI VITAMIN [Concomitant]
     Active Substance: VITAMINS
  11. ALLERGY RELIEF (HOMEOPATHIC) [Concomitant]
  12. BIOTIN [Concomitant]
     Active Substance: BIOTIN
  13. COZAAR [Concomitant]
     Active Substance: LOSARTAN POTASSIUM
  14. ZINC. [Concomitant]
     Active Substance: ZINC
  15. B VITAMINS [Concomitant]
     Active Substance: CYANOCOBALAMIN\DEXPANTHENOL\NIACINAMIDE\PYRIDOXINE HYDROCHLORIDE\RIBOFLAVIN 5^-PHOSPHATE SODIUM\THIAMINE HYDROCHLORIDE\VITAMIN B COMPLEX
  16. OIL OF OREGANO [Concomitant]

REACTIONS (6)
  - Colitis [None]
  - Diarrhoea [None]
  - Gastrointestinal inflammation [None]
  - Pain [None]
  - Renal cyst [None]
  - Asthenia [None]

NARRATIVE: CASE EVENT DATE: 20170710
